FAERS Safety Report 15513586 (Version 1)
Quarter: 2018Q4

REPORT INFORMATION
  Report Type: Spontaneous
  Country: US (occurrence: US)
  Receive Date: 20181017
  Receipt Date: 20181017
  Transmission Date: 20190205
  Serious: Yes (Death)
  Sender: FDA-Public Use
  Company Number: None

PATIENT
  Age: 78 Year
  Sex: Female

DRUGS (2)
  1. DOCUSATE SODIUM SOFTGEL [Suspect]
     Active Substance: DOCUSATE SODIUM
  2. LISINOPRIL TABLET [Suspect]
     Active Substance: LISINOPRIL

REACTIONS (1)
  - Death [None]
